FAERS Safety Report 7214757-8 (Version None)
Quarter: 2011Q1

REPORT INFORMATION
  Report Type: 
  Country: None (occurrence: None)
  Receive Date: 20110107
  Receipt Date: 20100126
  Transmission Date: 20110831
  Serious: No
  Sender: FDA-Public Use
  Company Number: A0841499A

PATIENT
  Age: 39 Year
  Sex: Female

DRUGS (6)
  1. LOVAZA [Suspect]
     Dosage: 1CAP TWICE PER DAY
     Route: 048
     Dates: start: 20091001, end: 20100124
  2. NOVOLOG [Concomitant]
  3. ASCORBIC ACID [Concomitant]
  4. FOLIC ACID [Concomitant]
  5. VITAMIN D3 [Concomitant]
  6. COENZYME Q10 [Concomitant]

REACTIONS (4)
  - GASTROINTESTINAL PAIN [None]
  - PANCREATIC ENZYME ABNORMALITY [None]
  - PANCREATIC ENZYMES INCREASED [None]
  - ABDOMINAL DISCOMFORT [None]
